FAERS Safety Report 5044097-7 (Version None)
Quarter: 2006Q3

REPORT INFORMATION
  Report Type: 
  Country: None (occurrence: None)
  Receive Date: 20060706
  Receipt Date: 20060626
  Transmission Date: 20061208
  Serious: Yes (Hospitalization)
  Sender: FDA-Public Use
  Company Number: PHRM2006FR01940

PATIENT
  Age: 15 Day
  Sex: Female
  Weight: 3.5 kg

DRUGS (1)
  1. METHERGINE [Suspect]
     Dosage: 0.125 MG, TID
     Route: 048
     Dates: start: 20060517, end: 20060517

REACTIONS (3)
  - CONVULSION NEONATAL [None]
  - FEEDING DISORDER NEONATAL [None]
  - WRONG DRUG ADMINISTERED [None]
